FAERS Safety Report 7393557-2 (Version None)
Quarter: 2011Q1

REPORT INFORMATION
  Report Type: 
  Country: None (occurrence: None)
  Receive Date: 20110331
  Receipt Date: 20110331
  Transmission Date: 20110831
  Serious: Yes (Other)
  Sender: FDA-Public Use
  Company Number: None

PATIENT
  Age: 68 Year
  Sex: Male
  Weight: 72.5755 kg

DRUGS (1)
  1. LOSARTAN POTASSIUM [Suspect]
     Indication: HYPERTENSION
     Dosage: 1 TABLET ONCE DAILY MOUTH
     Route: 048
     Dates: start: 20110309

REACTIONS (5)
  - SKIN DISCOLOURATION [None]
  - POOR PERIPHERAL CIRCULATION [None]
  - FEELING ABNORMAL [None]
  - PARAESTHESIA [None]
  - HYPERAESTHESIA [None]
